FAERS Safety Report 21675209 (Version 24)
Quarter: 2025Q2

REPORT INFORMATION
  Report Type: Report from Study
  Country: AU (occurrence: AU)
  Receive Date: 20221202
  Receipt Date: 20250408
  Transmission Date: 20250717
  Serious: Yes (Death, Life-Threatening, Hospitalization, Other)
  Sender: TAKEDA
  Company Number: AU-TAKEDA-2022TUS090076

PATIENT
  Age: 71 Year
  Sex: Female
  Weight: 70 kg

DRUGS (14)
  1. TEDUGLUTIDE [Suspect]
     Active Substance: TEDUGLUTIDE
     Indication: Short-bowel syndrome
     Dosage: 0.33 MILLILITER, QD
     Dates: start: 20221121, end: 20221205
  2. TEDUGLUTIDE [Suspect]
     Active Substance: TEDUGLUTIDE
     Indication: Functional gastrointestinal disorder
     Dates: start: 20221124, end: 20230924
  3. TEDUGLUTIDE [Suspect]
     Active Substance: TEDUGLUTIDE
  4. TEDUGLUTIDE [Suspect]
     Active Substance: TEDUGLUTIDE
     Dates: start: 20221210, end: 20221219
  5. TEDUGLUTIDE [Suspect]
     Active Substance: TEDUGLUTIDE
     Dosage: 0.15 MILLILITER, QD
  6. TEDUGLUTIDE [Suspect]
     Active Substance: TEDUGLUTIDE
     Dosage: 0.15 MILLILITER, QD
     Dates: end: 20230306
  7. TEDUGLUTIDE [Suspect]
     Active Substance: TEDUGLUTIDE
  8. TEDUGLUTIDE [Suspect]
     Active Substance: TEDUGLUTIDE
     Dosage: 0.15 MILLILITER, QOD
     Dates: end: 20230310
  9. TEDUGLUTIDE [Suspect]
     Active Substance: TEDUGLUTIDE
     Dosage: 0.15 MILLILITER, QD
     Dates: end: 20230315
  10. TEDUGLUTIDE [Suspect]
     Active Substance: TEDUGLUTIDE
     Dosage: 0.33 MILLILITER, QD
     Dates: end: 20221220
  11. TEDUGLUTIDE [Suspect]
     Active Substance: TEDUGLUTIDE
     Dosage: 0.15 MILLILITER, QOD
  12. TEDUGLUTIDE [Suspect]
     Active Substance: TEDUGLUTIDE
     Dosage: 0.1 MILLILITER, QD
  13. TEDUGLUTIDE [Suspect]
     Active Substance: TEDUGLUTIDE
     Dosage: 0.1 MILLILITER, QD
     Dates: end: 20230905
  14. TEDUGLUTIDE [Suspect]
     Active Substance: TEDUGLUTIDE
     Dosage: 0.08 MILLILITER, QD
     Dates: end: 20230924

REACTIONS (17)
  - Short-bowel syndrome [Fatal]
  - Hypotension [Not Recovered/Not Resolved]
  - Constipation [Recovered/Resolved]
  - Gastrointestinal stoma output decreased [Recovered/Resolved]
  - Joint swelling [Recovered/Resolved]
  - Fistula [Recovering/Resolving]
  - Weight increased [Not Recovered/Not Resolved]
  - Vomiting [Recovering/Resolving]
  - Oedema peripheral [Recovered/Resolved]
  - Abdominal pain [Recovering/Resolving]
  - Small intestinal obstruction [Recovered/Resolved]
  - Intestinal obstruction [Recovering/Resolving]
  - Fall [Not Recovered/Not Resolved]
  - Peripheral swelling [Recovered/Resolved]
  - Decreased appetite [Not Recovered/Not Resolved]
  - Polyuria [Recovered/Resolved]
  - Blood albumin decreased [Recovered/Resolved]

NARRATIVE: CASE EVENT DATE: 20221125
